FAERS Safety Report 10167952 (Version 1)
Quarter: 2014Q2

REPORT INFORMATION
  Report Type: Spontaneous
  Country: BR (occurrence: BR)
  Receive Date: 20140512
  Receipt Date: 20140512
  Transmission Date: 20141212
  Serious: Yes (Death)
  Sender: FDA-Public Use
  Company Number: BR-GLAXOSMITHKLINE-A1072649A

PATIENT
  Sex: Male
  Weight: 90 kg

DRUGS (3)
  1. AVODART [Suspect]
     Indication: PRODUCT USED FOR UNKNOWN INDICATION
     Dosage: .5MG UNKNOWN
     Route: 048
  2. NEBILET [Concomitant]
  3. CALCIUM [Concomitant]

REACTIONS (3)
  - Sepsis [Fatal]
  - Tumour excision [Unknown]
  - Infection [Fatal]
